FAERS Safety Report 16068642 (Version 1)
Quarter: 2019Q1

REPORT INFORMATION
  Report Type: Spontaneous
  Country: US (occurrence: US)
  Receive Date: 20190313
  Receipt Date: 20190313
  Transmission Date: 20190418
  Serious: No
  Sender: FDA-Public Use
  Company Number: US-SA-2019SA069212

PATIENT
  Age: 74 Year
  Sex: Female

DRUGS (2)
  1. H.P. ACTHAR [Concomitant]
     Active Substance: CORTICOTROPIN
     Dosage: 80 IU, TWO TIMES A WEEK
  2. KEVZARA [Suspect]
     Active Substance: SARILUMAB
     Dosage: 200 MG, QOW
     Route: 058

REACTIONS (1)
  - Oropharyngeal pain [Unknown]
